FAERS Safety Report 12172652 (Version 1)
Quarter: 2016Q1

REPORT INFORMATION
  Report Type: Other
  Country: DE (occurrence: DE)
  Receive Date: 20160311
  Receipt Date: 20160311
  Transmission Date: 20160526
  Serious: Yes (Other)
  Sender: FDA-Public Use
  Company Number: DE-MYLANLABS-2016M1010056

PATIENT

DRUGS (5)
  1. METOHEXAL [Concomitant]
     Active Substance: METOPROLOL SUCCINATE
     Indication: ARRHYTHMIA
     Dosage: 71.25 [MG/D (23.75-0-47.5) ]/ 23.75MG - 0 - 47.5MG PER DAY
     Route: 048
     Dates: start: 20150215, end: 20151111
  2. MIRTAZAPINE. [Suspect]
     Active Substance: MIRTAZAPINE
     Indication: SLEEP DISORDER
     Dosage: 7.5 [MG/D ]
     Route: 048
     Dates: start: 20150215, end: 20151111
  3. TIANEURAX [Suspect]
     Active Substance: TIANEPTINE SODIUM
     Indication: DEPRESSION
     Dosage: 12.5 [MG/D ]
     Route: 048
     Dates: start: 20150215, end: 20151111
  4. FOLIC ACID. [Concomitant]
     Active Substance: FOLIC ACID
     Indication: VITAMIN SUPPLEMENTATION
     Dosage: PROBABLY UNTIL DELIVERY; HOWEVER, DURATION OF INTAKE WAS NOT TOLD.
     Route: 048
  5. CITALOPRAM [Suspect]
     Active Substance: CITALOPRAM HYDROBROMIDE
     Indication: DEPRESSION
     Dosage: 10 [MG/D ]
     Route: 048
     Dates: start: 20150215, end: 20151111

REACTIONS (3)
  - Exposure during pregnancy [Unknown]
  - Gestational diabetes [Recovered/Resolved]
  - Polyhydramnios [Recovered/Resolved]
